FAERS Safety Report 4505566-9 (Version None)
Quarter: 2004Q4

REPORT INFORMATION
  Report Type: 
  Country: None (occurrence: None)
  Receive Date: 20041119
  Receipt Date: 20041020
  Transmission Date: 20050328
  Serious: No
  Sender: FDA-Public Use
  Company Number: US-GLAXOSMITHKLINE-A0530623A

PATIENT
  Age: 74 Year
  Sex: Male

DRUGS (6)
  1. AVODART [Suspect]
     Indication: BENIGN PROSTATIC HYPERPLASIA
     Dosage: .5MG PER DAY
     Route: 048
     Dates: start: 20040301
  2. LOPRESSOR [Concomitant]
  3. FLOMAX [Concomitant]
  4. ECOTRIN [Concomitant]
  5. MULTIVITAMIN [Concomitant]
  6. LORAZEPAM [Concomitant]

REACTIONS (2)
  - HYPERHIDROSIS [None]
  - WEIGHT INCREASED [None]
